FAERS Safety Report 7094758-3 (Version None)
Quarter: 2010Q4

REPORT INFORMATION
  Report Type: 
  Country: None (occurrence: None)
  Receive Date: 20101110
  Receipt Date: 20101101
  Transmission Date: 20110411
  Serious: Yes (Hospitalization)
  Sender: FDA-Public Use
  Company Number: US-WATSON-2010-05081

PATIENT
  Age: 74 Year
  Sex: Female

DRUGS (2)
  1. RISPERDONE [Suspect]
     Indication: AGGRESSION
     Dosage: 1 MG, DAILY
     Route: 065
  2. CITALOPRAM HYDROBROMIDE [Suspect]
     Indication: DEPRESSION
     Dosage: 40 MG, DAILY
     Route: 065

REACTIONS (3)
  - DEHYDRATION [None]
  - RENAL FAILURE [None]
  - SEROTONIN SYNDROME [None]
